FAERS Safety Report 16031897 (Version 2)
Quarter: 2019Q1

REPORT INFORMATION
  Report Type: Spontaneous
  Country: JP (occurrence: JP)
  Receive Date: 20190304
  Receipt Date: 20190321
  Transmission Date: 20190418
  Serious: Yes (Hospitalization, Other)
  Sender: FDA-Public Use
  Company Number: JP-009507513-1902JPN002582J

PATIENT
  Sex: Male

DRUGS (1)
  1. KEYTRUDA [Suspect]
     Active Substance: PEMBROLIZUMAB
     Indication: NON-SMALL CELL LUNG CANCER
     Dosage: 200 MILLIGRAM, Q3W
     Route: 041
     Dates: end: 201812

REACTIONS (7)
  - Pneumomediastinum [Not Recovered/Not Resolved]
  - Hepatitis acute [Not Recovered/Not Resolved]
  - Hepatic function abnormal [Unknown]
  - Infection [Unknown]
  - Gallbladder oedema [Unknown]
  - Interstitial lung disease [Not Recovered/Not Resolved]
  - Cytomegalovirus test positive [Unknown]

NARRATIVE: CASE EVENT DATE: 201812
